FAERS Safety Report 12732622 (Version 1)
Quarter: 2016Q3

REPORT INFORMATION
  Report Type: Spontaneous
  Country: US (occurrence: US)
  Receive Date: 20160912
  Receipt Date: 20160912
  Transmission Date: 20161109
  Serious: Yes (Life-Threatening, Hospitalization, Other)
  Sender: FDA-Public Use
  Company Number: US-BRISTOL-MYERS SQUIBB COMPANY-BMS-2016-074514

PATIENT
  Age: 88 Year
  Sex: Male

DRUGS (19)
  1. DASATINIB [Suspect]
     Active Substance: DASATINIB
     Indication: CHRONIC MYELOID LEUKAEMIA
     Dosage: 100 MG, QD
     Route: 065
     Dates: start: 201103
  2. IMATINIB [Suspect]
     Active Substance: IMATINIB
     Dosage: 400 MG, QD
     Route: 065
     Dates: start: 201102
  3. IMATINIB [Suspect]
     Active Substance: IMATINIB
     Dosage: 300 MG, QD
     Route: 065
     Dates: start: 201307
  4. NILOTINIB [Suspect]
     Active Substance: NILOTINIB
     Indication: CHRONIC MYELOID LEUKAEMIA
     Dosage: 400 MG, BID
     Route: 065
     Dates: start: 201109
  5. NILOTINIB [Suspect]
     Active Substance: NILOTINIB
     Dosage: 400 MG, QD
     Route: 065
  6. BOSUTINIB [Suspect]
     Active Substance: BOSUTINIB
     Dosage: 200 MG, QD
     Route: 065
     Dates: start: 201402
  7. BOSUTINIB [Suspect]
     Active Substance: BOSUTINIB
     Dosage: 300 MG, QD
     Route: 065
     Dates: start: 201405
  8. RABEPRAZOLE [Suspect]
     Active Substance: RABEPRAZOLE
     Indication: PRODUCT USED FOR UNKNOWN INDICATION
     Route: 065
  9. IMATINIB [Suspect]
     Active Substance: IMATINIB
     Dosage: 400 MG, QD
     Route: 065
     Dates: start: 201308
  10. NILOTINIB [Suspect]
     Active Substance: NILOTINIB
     Dosage: 400 MG, UNK
     Route: 065
     Dates: start: 201110
  11. TAMSULOSIN [Concomitant]
     Active Substance: TAMSULOSIN
     Indication: PRODUCT USED FOR UNKNOWN INDICATION
     Route: 065
  12. DASATINIB [Suspect]
     Active Substance: DASATINIB
     Dosage: 100 MG, QD
     Route: 065
     Dates: start: 201107
  13. IMATINIB [Suspect]
     Active Substance: IMATINIB
     Indication: CHRONIC MYELOID LEUKAEMIA
     Dosage: 400 MG, QD
     Route: 065
     Dates: start: 201011
  14. DIAZEPAM. [Concomitant]
     Active Substance: DIAZEPAM
     Indication: PRODUCT USED FOR UNKNOWN INDICATION
     Route: 065
  15. IMATINIB [Suspect]
     Active Substance: IMATINIB
     Dosage: 300 MG, QD
     Route: 065
  16. BOSUTINIB [Suspect]
     Active Substance: BOSUTINIB
     Indication: PHILADELPHIA CHROMOSOME POSITIVE
     Dosage: 500 MG, QD
     Route: 065
     Dates: start: 2013
  17. FINASTERIDE. [Concomitant]
     Active Substance: FINASTERIDE
     Indication: PRODUCT USED FOR UNKNOWN INDICATION
     Route: 065
  18. IMATINIB [Suspect]
     Active Substance: IMATINIB
     Dosage: 400 MG, QD
     Route: 065
     Dates: start: 201111
  19. BOSUTINIB [Suspect]
     Active Substance: BOSUTINIB
     Dosage: 500 MG, 3 TIMES/WK
     Route: 065
     Dates: start: 2013

REACTIONS (4)
  - Aspiration pleural cavity [Unknown]
  - Labelled drug-drug interaction medication error [Unknown]
  - Pleural effusion [Unknown]
  - Inappropriate antidiuretic hormone secretion [Not Recovered/Not Resolved]

NARRATIVE: CASE EVENT DATE: 201107
